FAERS Safety Report 5406652-1 (Version None)
Quarter: 2007Q3

REPORT INFORMATION
  Report Type: 
  Country: None (occurrence: None)
  Receive Date: 20070806
  Receipt Date: 20070731
  Transmission Date: 20080115
  Serious: Yes (Hospitalization, Other)
  Sender: FDA-Public Use
  Company Number: US-PFIZER INC-2007063600

PATIENT
  Sex: Male
  Weight: 93.2 kg

DRUGS (5)
  1. LYRICA [Suspect]
     Indication: SCIATICA
     Dates: start: 20070501, end: 20070701
  2. OXYCONTIN [Concomitant]
  3. LORTAB [Concomitant]
  4. GLUCOPHAGE [Concomitant]
     Indication: DIABETES MELLITUS
  5. DRUG USED IN DIABETES [Concomitant]
     Indication: DIABETES MELLITUS

REACTIONS (4)
  - ARTHRALGIA [None]
  - OEDEMA PERIPHERAL [None]
  - PARAESTHESIA [None]
  - THROMBOSIS [None]
